FAERS Safety Report 12479147 (Version 1)
Quarter: 2016Q2

REPORT INFORMATION
  Report Type: Spontaneous
  Country: FR (occurrence: FR)
  Receive Date: 20160620
  Receipt Date: 20160620
  Transmission Date: 20160815
  Serious: Yes (Hospitalization, Other)
  Sender: FDA-Public Use
  Company Number: FR-BRISTOL-MYERS SQUIBB COMPANY-BMS-2016-045593

PATIENT
  Age: 89 Year
  Sex: Male

DRUGS (10)
  1. OFLOXACIN. [Concomitant]
     Active Substance: OFLOXACIN
     Indication: URINARY TRACT INFECTION
     Route: 048
  2. LASILIX                            /00032601/ [Concomitant]
     Active Substance: FUROSEMIDE
     Indication: OEDEMA
     Dosage: 0.5 DF, QD
     Route: 048
  3. COUMADINE [Suspect]
     Active Substance: WARFARIN SODIUM
     Indication: PRODUCT USED FOR UNKNOWN INDICATION
     Dosage: 2 MG, BID
     Route: 048
     Dates: end: 20150710
  4. SINGULAIR [Concomitant]
     Active Substance: MONTELUKAST SODIUM
     Indication: CHRONIC OBSTRUCTIVE PULMONARY DISEASE
     Dosage: 10 MG, QD
     Route: 048
  5. INEXIUM                            /01479302/ [Concomitant]
     Active Substance: ESOMEPRAZOLE MAGNESIUM
     Indication: PRODUCT USED FOR UNKNOWN INDICATION
     Dosage: 40 MG, QD
     Route: 048
  6. EFFERALGAN [Concomitant]
     Active Substance: ACETAMINOPHEN
     Indication: PAIN
     Dosage: UNK
     Route: 048
     Dates: end: 20150710
  7. LEXOMIL [Concomitant]
     Active Substance: BROMAZEPAM
     Indication: ANXIETY
     Dosage: 0.25 MG, QD
     Route: 048
     Dates: end: 20150710
  8. SOLUPRED                           /00016201/ [Concomitant]
     Active Substance: PREDNISOLONE
     Indication: PLASMA CELL MYELOMA
     Dosage: 10 MG, QD
     Route: 048
     Dates: end: 20150710
  9. TRIATEC                            /00116401/ [Concomitant]
     Active Substance: ACETAMINOPHEN\CODEINE PHOSPHATE
     Indication: HYPERTENSION
     Dosage: 2.5 MG, QD
     Route: 048
     Dates: end: 20150710
  10. MOVICOL [Concomitant]
     Active Substance: POLYETHYLENE GLYCOL 3350\POTASSIUM CHLORIDE\SODIUM BICARBONATE\SODIUM CHLORIDE
     Indication: CONSTIPATION
     Dosage: UNK, QD
     Route: 048

REACTIONS (12)
  - Nephropathy toxic [Unknown]
  - Diabetes mellitus [Unknown]
  - Gastrointestinal haemorrhage [Unknown]
  - International normalised ratio increased [Recovered/Resolved]
  - Pseudomonas infection [Unknown]
  - Abscess [Unknown]
  - Acute kidney injury [Unknown]
  - Rectal haemorrhage [Recovered/Resolved]
  - Asthenia [Recovered/Resolved]
  - Sepsis [Unknown]
  - Urinary tract infection [Unknown]
  - Finger amputation [Unknown]

NARRATIVE: CASE EVENT DATE: 20150708
